FAERS Safety Report 5321452-9 (Version None)
Quarter: 2007Q2

REPORT INFORMATION
  Report Type: 
  Country: None (occurrence: None)
  Receive Date: 20070510
  Receipt Date: 20070504
  Transmission Date: 20071010
  Serious: Yes (Life-Threatening, Other)
  Sender: FDA-Public Use
  Company Number: B0446686A

PATIENT
  Age: 37 Year
  Sex: Female
  Weight: 150 kg

DRUGS (14)
  1. AUGMENTIN '125' [Suspect]
     Indication: DRUG USE FOR UNKNOWN INDICATION
     Route: 042
     Dates: start: 20061002
  2. SUCCINYLCHOLINE CHLORIDE [Suspect]
     Indication: DRUG USE FOR UNKNOWN INDICATION
     Route: 042
     Dates: start: 20061002
  3. THIOPENTONE [Suspect]
     Indication: DRUG USE FOR UNKNOWN INDICATION
     Route: 042
     Dates: start: 20061002
  4. ALFENTANIL [Concomitant]
     Route: 042
  5. ATRACURIUM BESYLATE [Concomitant]
     Route: 042
     Dates: start: 20061002
  6. CIMETIDINE HCL [Concomitant]
     Dosage: 200MG TWICE PER DAY
     Route: 048
  7. CYCLIZINE [Concomitant]
     Route: 042
  8. FRUSEMIDE [Concomitant]
     Route: 042
  9. MORPHINE [Concomitant]
     Route: 042
  10. ONDANSETRON [Concomitant]
     Route: 042
  11. OXYTOCIN [Concomitant]
     Route: 042
  12. LEVOTHYROXINE SODIUM [Concomitant]
     Route: 048
  13. VENTOLIN [Concomitant]
  14. BECOTIDE [Concomitant]

REACTIONS (11)
  - AIRWAY COMPLICATION OF ANAESTHESIA [None]
  - ANAESTHETIC COMPLICATION PULMONARY [None]
  - ANAPHYLACTIC REACTION [None]
  - BRONCHOSPASM [None]
  - DRUG EXPOSURE DURING PREGNANCY [None]
  - ENDOTRACHEAL INTUBATION COMPLICATION [None]
  - HYPOTENSION [None]
  - HYPOXIA [None]
  - LIP SWELLING [None]
  - PULMONARY OEDEMA [None]
  - SWOLLEN TONGUE [None]
